FAERS Safety Report 9794882 (Version 1)
Quarter: 2014Q1

REPORT INFORMATION
  Report Type: Spontaneous
  Country: US (occurrence: US)
  Receive Date: 20140102
  Receipt Date: 20140102
  Transmission Date: 20141002
  Serious: No
  Sender: FDA-Public Use
  Company Number: US-JHP PHARMACEUTICALS, LLC-JHP201300272

PATIENT
  Age: 29 Year
  Sex: Female

DRUGS (3)
  1. APLISOL DIAGNOSTIC ANTIGEN [Suspect]
     Indication: TUBERCULIN TEST
     Dosage: 0.1 ML, SINGLE
     Route: 023
     Dates: start: 20130401, end: 20130401
  2. DIPHTHERIA TETANUS PERTUSSIS VACCINE [Concomitant]
  3. HEPATITIS B VACCINE [Concomitant]

REACTIONS (1)
  - Injection site reaction [Unknown]
